FAERS Safety Report 24340113 (Version 1)
Quarter: 2024Q3

REPORT INFORMATION
  Report Type: Spontaneous
  Country: US (occurrence: None)
  Receive Date: 20240919
  Receipt Date: 20240919
  Transmission Date: 20241016
  Serious: No
  Sender: Public
  Company Number: None

PATIENT
  Sex: Female

DRUGS (1)
  1. OTEZLA [Suspect]
     Active Substance: APREMILAST
     Indication: Psoriasis
     Dosage: FREQUENCY : TWICE A DAY;?
     Route: 048
     Dates: start: 201610

REACTIONS (7)
  - Blood calcium increased [None]
  - Pruritus [None]
  - Skin burning sensation [None]
  - Erythema [None]
  - Intentional dose omission [None]
  - Psoriasis [None]
  - Condition aggravated [None]
